FAERS Safety Report 4617251-3 (Version None)
Quarter: 2005Q1

REPORT INFORMATION
  Report Type: 
  Country: None (occurrence: None)
  Receive Date: 20050323
  Receipt Date: 20050316
  Transmission Date: 20050727
  Serious: Yes (Other)
  Sender: FDA-Public Use
  Company Number: PHBS2005JP03891

PATIENT
  Age: 56 Year
  Sex: Female

DRUGS (7)
  1. CYTARABINE [Concomitant]
     Indication: BONE MARROW TRANSPLANT
     Dosage: 8 G/M^2
     Dates: start: 20031001
  2. CYCLOPHOSPHAMIDE [Concomitant]
     Indication: BONE MARROW TRANSPLANT
     Dosage: 120 MG/KG
     Dates: start: 20031001
  3. IRRADIATION [Concomitant]
     Indication: BONE MARROW TRANSPLANT
  4. METHOTREXATE [Concomitant]
     Indication: BONE MARROW TRANSPLANT
  5. CYCLOSPORINE [Suspect]
     Indication: BONE MARROW TRANSPLANT
     Dosage: 1.5 MG/KG, BID
     Route: 042
     Dates: start: 20031001
  6. CYCLOSPORINE [Suspect]
     Route: 048
  7. IMATINIB [Suspect]
     Indication: ACUTE LYMPHOCYTIC LEUKAEMIA
     Dosage: 600 MG/D
     Route: 048

REACTIONS (7)
  - BONE MARROW TRANSPLANT [None]
  - CHROMOSOME ANALYSIS ABNORMAL [None]
  - GRAFT VERSUS HOST DISEASE [None]
  - LIVER DISORDER [None]
  - PANCYTOPENIA [None]
  - PYREXIA [None]
  - RASH [None]
